FAERS Safety Report 15663084 (Version 1)
Quarter: 2018Q4

REPORT INFORMATION
  Report Type: Spontaneous
  Country: US (occurrence: US)
  Receive Date: 20181127
  Receipt Date: 20181127
  Transmission Date: 20190205
  Serious: No
  Sender: FDA-Public Use
  Company Number: US-SA-2018SA322668

PATIENT
  Age: 64 Year

DRUGS (1)
  1. ZANTAC [Suspect]
     Active Substance: RANITIDINE HYDROCHLORIDE
     Indication: URTICARIA
     Dosage: 150 MG, BID

REACTIONS (4)
  - Condition aggravated [Unknown]
  - Headache [Unknown]
  - Urticaria [Unknown]
  - Product use in unapproved indication [Unknown]
